FAERS Safety Report 18765591 (Version 2)
Quarter: 2021Q1

REPORT INFORMATION
  Report Type: Spontaneous
  Country: US (occurrence: US)
  Receive Date: 20210121
  Receipt Date: 20210122
  Transmission Date: 20210419
  Serious: No
  Sender: FDA-Public Use
  Company Number: US-HORIZON-2021HZN00453

PATIENT
  Age: 70 Year
  Sex: Female

DRUGS (1)
  1. TEPEZZA [Suspect]
     Active Substance: TEPROTUMUMAB-TRBW
     Indication: PRODUCT USED FOR UNKNOWN INDICATION
     Route: 050

REACTIONS (6)
  - Rash pruritic [Unknown]
  - Dry skin [Unknown]
  - Dry throat [Unknown]
  - Product dose omission issue [Unknown]
  - Rash [Unknown]
  - Fatigue [Unknown]
